FAERS Safety Report 6300867-6 (Version None)
Quarter: 2009Q3

REPORT INFORMATION
  Report Type: 
  Country: None (occurrence: None)
  Receive Date: 20090807
  Receipt Date: 20090804
  Transmission Date: 20100115
  Serious: Yes (Hospitalization)
  Sender: FDA-Public Use
  Company Number: FR-TEVA-204853ISR

PATIENT
  Age: 67 Year
  Sex: Female

DRUGS (5)
  1. CARBOPLATIN [Suspect]
     Indication: NON-HODGKIN'S LYMPHOMA
     Dates: start: 20090415, end: 20090415
  2. CYTARABINE [Suspect]
     Dates: start: 20090414, end: 20090414
  3. RITUXIMAB [Suspect]
     Dates: start: 20090414, end: 20090414
  4. METHYLPREDNISOLONE SODIUM SUCCINATE [Suspect]
     Dates: start: 20090414, end: 20090415
  5. PREDNISONE [Suspect]
     Route: 048
     Dates: start: 20090416, end: 20090418

REACTIONS (1)
  - COLITIS [None]
